FAERS Safety Report 8188943-7 (Version None)
Quarter: 2012Q1

REPORT INFORMATION
  Report Type: 
  Country: None (occurrence: None)
  Receive Date: 20120306
  Receipt Date: 20120301
  Transmission Date: 20120608
  Serious: Yes (Other)
  Sender: FDA-Public Use
  Company Number: US-AMGEN-USASP2011013751

PATIENT
  Age: 80 Year
  Sex: Female

DRUGS (6)
  1. VYTORIN [Concomitant]
  2. METOPROLOL TARTRATE [Concomitant]
  3. LISINOPRIL AND HYDROCHLOROTHIAZIDE [Concomitant]
  4. CRESTOR [Concomitant]
  5. PROLIA [Suspect]
     Indication: OSTEOPOROSIS POSTMENOPAUSAL
     Dosage: 60 MG, Q6MO
     Route: 058
     Dates: start: 20111129, end: 20111129
  6. ALENDRONATE SODIUM [Concomitant]

REACTIONS (5)
  - FOOT DEFORMITY [None]
  - ARTHRALGIA [None]
  - DIZZINESS [None]
  - INJECTION SITE PRURITUS [None]
  - PAIN IN EXTREMITY [None]
